FAERS Safety Report 8077703-3 (Version None)
Quarter: 2012Q1

REPORT INFORMATION
  Report Type: 
  Country: None (occurrence: None)
  Receive Date: 20120127
  Receipt Date: 20120112
  Transmission Date: 20120608
  Serious: Yes (Other)
  Sender: FDA-Public Use
  Company Number: JP-PFIZER INC-2011309302

PATIENT
  Age: 15 Year
  Sex: Female

DRUGS (2)
  1. PREDNISOLONE [Concomitant]
     Dosage: 30 MG, UNK
  2. SOLU-MEDROL [Suspect]
     Indication: LUPUS NEPHRITIS
     Dosage: UNK
     Route: 041

REACTIONS (1)
  - DEVICE RELATED INFECTION [None]
